FAERS Safety Report 10498337 (Version 2)
Quarter: 2014Q4

REPORT INFORMATION
  Report Type: Spontaneous
  Country: US (occurrence: US)
  Receive Date: 20141006
  Receipt Date: 20141110
  Transmission Date: 20150528
  Serious: No
  Sender: FDA-Public Use
  Company Number: US-ELI_LILLY_AND_COMPANY-US201410000317

PATIENT
  Sex: Male
  Weight: 82.99 kg

DRUGS (13)
  1. ALPHA LIPOIC ACID [Concomitant]
     Active Substance: .ALPHA.-LIPOIC ACID
  2. VITAMIN C [Concomitant]
     Active Substance: ASCORBIC ACID
  3. VALERIAN EXTRACT [Concomitant]
     Active Substance: VALERIAN EXTRACT
  4. COLESTID [Concomitant]
     Active Substance: COLESTIPOL HYDROCHLORIDE
  5. FINASTERIDE. [Concomitant]
     Active Substance: FINASTERIDE
  6. CRANBERRY                          /01512301/ [Concomitant]
  7. TERIPARATIDE [Suspect]
     Active Substance: TERIPARATIDE
     Indication: OSTEOPOROSIS
     Dosage: UNK, QD
     Route: 058
     Dates: start: 20140920, end: 20141021
  8. ECHINACEA                          /01323501/ [Concomitant]
  9. CALCIUM W/VITAMIN D NOS [Concomitant]
     Active Substance: CALCIUM\VITAMIN D
  10. NASONEX [Concomitant]
     Active Substance: MOMETASONE FUROATE
  11. CENTRUM SILVER                     /01292501/ [Concomitant]
  12. LEVOTHYROXINE [Concomitant]
     Active Substance: LEVOTHYROXINE
  13. ALPRAZOLAM. [Concomitant]
     Active Substance: ALPRAZOLAM

REACTIONS (3)
  - Bone pain [Unknown]
  - Neuralgia [Unknown]
  - Arthralgia [Unknown]
